FAERS Safety Report 21675941 (Version 1)
Quarter: 2022Q4

REPORT INFORMATION
  Report Type: Spontaneous
  Country: US (occurrence: None)
  Receive Date: 20221202
  Receipt Date: 20221202
  Transmission Date: 20230113
  Serious: Yes (unspecified)
  Sender: FDA-Public Use
  Company Number: None

PATIENT
  Age: 67 Year
  Sex: Female

DRUGS (1)
  1. TRAZIMERA [Suspect]
     Active Substance: TRASTUZUMAB-QYYP

REACTIONS (12)
  - Nausea [None]
  - Vomiting [None]
  - Diarrhoea [None]
  - Infusion related reaction [None]
  - Abdominal discomfort [None]
  - Chills [None]
  - Blood pressure decreased [None]
  - Oxygen saturation decreased [None]
  - Tachycardia [None]
  - White blood cell count increased [None]
  - Blood lactic acid increased [None]
  - Therapy cessation [None]

NARRATIVE: CASE EVENT DATE: 20221003
